FAERS Safety Report 4515095-4 (Version None)
Quarter: 2004Q4

REPORT INFORMATION
  Report Type: 
  Country: None (occurrence: None)
  Receive Date: 20041201
  Receipt Date: 20041123
  Transmission Date: 20050328
  Serious: Yes (Congenital Anomaly)
  Sender: FDA-Public Use
  Company Number: HU-JNJFOC-20041106675

PATIENT
  Sex: Male

DRUGS (1)
  1. LEVAMISOLE [Suspect]
     Indication: ASCARIASIS
     Dosage: MOTHER RECEIVED TREATMENT IN THE SIXTH GESTATIONAL MONTH

REACTIONS (5)
  - CONGENITAL GENITAL MALFORMATION MALE [None]
  - CRYPTORCHISM [None]
  - DRUG EXPOSURE DURING PREGNANCY [None]
  - SPINA BIFIDA [None]
  - SYNDACTYLY [None]
